FAERS Safety Report 19937017 (Version 3)
Quarter: 2022Q1

REPORT INFORMATION
  Report Type: Report from Study
  Country: ES (occurrence: None)
  Receive Date: 20211009
  Receipt Date: 20220330
  Transmission Date: 20220423
  Serious: Yes (Hospitalization)
  Sender: FDA-Public Use
  Company Number: ES-ROCHE-2929656

PATIENT
  Age: 56 Year
  Sex: Male

DRUGS (18)
  1. ATEZOLIZUMAB [Suspect]
     Active Substance: ATEZOLIZUMAB
     Indication: Neuroendocrine tumour
     Dosage: ON 29/SEP/2021, THE PATIENT RECEIVED MOST RECENT DOSE (1200 MG) OF ATEZOLIZUMAB PRIOR TO SAE ONSET.
     Route: 041
     Dates: start: 20210413, end: 20210929
  2. CABOZANTINIB [Suspect]
     Active Substance: CABOZANTINIB
     Indication: Neuroendocrine tumour
     Dosage: ON 01/OCT/2021, THE PATIENT RECEIVED MOST RECENT DOSE (20 MG) OF CABOZANTINIB PRIOR TO SAE ONSET.
     Route: 048
     Dates: start: 20210413, end: 20211001
  3. AMLODIPINE [Concomitant]
     Active Substance: AMLODIPINE BESYLATE
     Indication: Hypertension
     Route: 048
  4. JANUVIA [Concomitant]
     Active Substance: SITAGLIPTIN PHOSPHATE
     Indication: Diabetes mellitus
     Route: 048
  5. FENTANYL [Concomitant]
     Active Substance: FENTANYL
     Dates: start: 20210712
  6. HYDROCORTISONE [Concomitant]
     Active Substance: HYDROCORTISONE
     Indication: Adrenal insufficiency
     Route: 048
     Dates: start: 20211001
  7. HYDROCORTISONE [Concomitant]
     Active Substance: HYDROCORTISONE
     Dates: start: 20211001, end: 20211002
  8. HYDROCORTISONE [Concomitant]
     Active Substance: HYDROCORTISONE
     Dates: start: 20211003, end: 20211003
  9. HYDROCORTISONE [Concomitant]
     Active Substance: HYDROCORTISONE
     Dates: start: 20211004, end: 20211004
  10. HYDROCORTISONE [Concomitant]
     Active Substance: HYDROCORTISONE
     Dates: start: 20211005, end: 20211005
  11. HYDROCORTISONE [Concomitant]
     Active Substance: HYDROCORTISONE
     Dates: start: 20211006, end: 20211006
  12. PREDNISONE [Concomitant]
     Active Substance: PREDNISONE
     Dates: start: 20211009, end: 20211011
  13. PREDNISONE [Concomitant]
     Active Substance: PREDNISONE
     Dates: start: 20211125, end: 20220317
  14. PREDNISONE [Concomitant]
     Active Substance: PREDNISONE
     Dates: start: 20220318
  15. SULFAMETHOXAZOLE\TRIMETHOPRIM [Concomitant]
     Active Substance: SULFAMETHOXAZOLE\TRIMETHOPRIM
     Dosage: 160 MG AND 800 MG
     Dates: start: 20211020
  16. FOLIC ACID [Concomitant]
     Active Substance: FOLIC ACID
     Dates: start: 20211020
  17. CALCIUM [Concomitant]
     Active Substance: CALCIUM
     Dates: start: 20211020
  18. VITAMIN D3 [Concomitant]
     Active Substance: CHOLECALCIFEROL
     Dates: start: 20211020

REACTIONS (1)
  - Myasthenia gravis [Recovered/Resolved]

NARRATIVE: CASE EVENT DATE: 20211001
